FAERS Safety Report 26038983 (Version 1)
Quarter: 2025Q4

REPORT INFORMATION
  Report Type: Spontaneous
  Country: US (occurrence: US)
  Receive Date: 20251113
  Receipt Date: 20251113
  Transmission Date: 20260118
  Serious: No
  Sender: ROCHE
  Company Number: US-ROCHE-10000426408

PATIENT
  Sex: Female

DRUGS (12)
  1. ACTEMRA ACTPEN [Suspect]
     Active Substance: TOCILIZUMAB
     Indication: Rheumatoid arthritis
     Dosage: 162 MG 0.9 ML
     Route: 058
  2. AMIODARONE H TAB 200MG [Concomitant]
     Route: 048
  3. ASPIRIN CHE 81MG [Concomitant]
  4. ATORVASTATIN [Concomitant]
     Active Substance: ATORVASTATIN
     Route: 048
  5. DILTIAZEM HC TAB 120MG [Concomitant]
     Route: 048
  6. FERROUS SULF TAB 325 MG [Concomitant]
     Route: 048
  7. FOLIC ACID TAB 1MG [Concomitant]
     Route: 048
  8. FUROSEMIDE [Concomitant]
     Active Substance: FUROSEMIDE
     Route: 048
  9. LISINOPRIL TAB 2.5MG [Concomitant]
     Route: 048
  10. METHOTREXATE [Concomitant]
     Active Substance: METHOTREXATE
     Route: 048
  11. PREDNISONE [Concomitant]
     Active Substance: PREDNISONE
     Route: 048
  12. VITAMIN D3 [Concomitant]
     Active Substance: CHOLECALCIFEROL
     Route: 048

REACTIONS (1)
  - Staphylococcal infection [Not Recovered/Not Resolved]
